FAERS Safety Report 9034277 (Version 1)
Quarter: 2013Q1

REPORT INFORMATION
  Report Type: Spontaneous
  Country: US (occurrence: None)
  Receive Date: 20130116
  Receipt Date: 20130116
  Transmission Date: 20140127
  Serious: Yes (Hospitalization)
  Sender: FDA-Public Use
  Company Number: None

PATIENT
  Age: 40 Year
  Sex: Female
  Weight: 97.52 kg

DRUGS (1)
  1. LEAN EFX REFINED FAHREHIET NUTRITION [Suspect]
     Dosage: 1 PILL
     Route: 048
     Dates: start: 20130112, end: 20130113

REACTIONS (3)
  - Burning sensation [None]
  - Rash erythematous [None]
  - Rash generalised [None]
